FAERS Safety Report 9309274 (Version 1)
Quarter: 2013Q2

REPORT INFORMATION
  Report Type: Spontaneous
  Country: US (occurrence: US)
  Receive Date: 20130525
  Receipt Date: 20130525
  Transmission Date: 20140414
  Serious: No
  Sender: FDA-Public Use
  Company Number: US-BRISTOL-MYERS SQUIBB COMPANY-18580787

PATIENT
  Age: 48 Year
  Sex: Female

DRUGS (2)
  1. BYDUREON 2MG VIAL + SYRINGE [Suspect]
     Route: 058
     Dates: start: 201211
  2. ACTOPLUS MET [Concomitant]
     Indication: TYPE 2 DIABETES MELLITUS
     Route: 048

REACTIONS (10)
  - Nasopharyngitis [Not Recovered/Not Resolved]
  - Injection site haemorrhage [Recovered/Resolved]
  - Drug dose omission [Recovered/Resolved]
  - Flatulence [Not Recovered/Not Resolved]
  - Eructation [Not Recovered/Not Resolved]
  - Bowel movement irregularity [Not Recovered/Not Resolved]
  - Nausea [Not Recovered/Not Resolved]
  - Vomiting [Not Recovered/Not Resolved]
  - Diarrhoea [Not Recovered/Not Resolved]
  - Injection site nodule [Recovering/Resolving]
